FAERS Safety Report 25916993 (Version 2)
Quarter: 2025Q4

REPORT INFORMATION
  Report Type: Report from Study
  Country: US (occurrence: US)
  Receive Date: 20251014
  Receipt Date: 20251127
  Transmission Date: 20260117
  Serious: No
  Sender: SANDOZ
  Company Number: US-SANDOZ-SDZ2025US037556

PATIENT
  Age: 34 Year
  Sex: Female

DRUGS (4)
  1. OMNITROPE [Suspect]
     Active Substance: SOMATROPIN
     Indication: In vitro fertilisation
     Dosage: 5.8 MG, QD
     Route: 058
  2. OMNITROPE [Suspect]
     Active Substance: SOMATROPIN
     Indication: In vitro fertilisation
     Dosage: 5.8 MG, QD
     Route: 058
  3. OMNITROPE [Suspect]
     Active Substance: SOMATROPIN
     Indication: Coeliac disease
  4. OMNITROPE [Suspect]
     Active Substance: SOMATROPIN
     Indication: Coeliac disease

REACTIONS (4)
  - Circumstance or information capable of leading to medication error [Unknown]
  - Off label use [Unknown]
  - Device use error [Unknown]
  - Device leakage [Unknown]

NARRATIVE: CASE EVENT DATE: 20251010
